FAERS Safety Report 7232089-9 (Version None)
Quarter: 2011Q1

REPORT INFORMATION
  Report Type: 
  Country: None (occurrence: None)
  Receive Date: 20110119
  Receipt Date: 20110112
  Transmission Date: 20110831
  Serious: Yes (Other)
  Sender: FDA-Public Use
  Company Number: AR-AMGEN-ARGSP2011002719

PATIENT

DRUGS (1)
  1. ENBREL [Suspect]
     Dosage: UNK
     Route: 065

REACTIONS (2)
  - MADAROSIS [None]
  - OPTIC NEURITIS [None]
